FAERS Safety Report 17832962 (Version 2)
Quarter: 2020Q2

REPORT INFORMATION
  Report Type: Spontaneous
  Country: US (occurrence: US)
  Receive Date: 20200528
  Receipt Date: 20200605
  Transmission Date: 20200714
  Serious: No
  Sender: FDA-Public Use
  Company Number: US-MTPC-MTDA2020-0053592

PATIENT
  Sex: Female

DRUGS (5)
  1. RADICAVA [Suspect]
     Active Substance: EDARAVONE
     Indication: AMYOTROPHIC LATERAL SCLEROSIS
     Dosage: 60 MILLIGRAM OVER 60 MINS QD FOR 14 DAYS, FOLLOWED BY A 14-DAY DRUG FREE PERIOD
     Route: 042
     Dates: start: 20200519
  2. RADICAVA [Suspect]
     Active Substance: EDARAVONE
     Dosage: 60 MILLIGRAM OVER 60 MINS QD FOR 10 DAYS WITHIN 14 DAYS, FOLLOWED BY A 14-DAY DRUG FREE PERIOD
     Route: 042
  3. TIGLUTIK [Concomitant]
     Active Substance: RILUZOLE
     Indication: PRODUCT USED FOR UNKNOWN INDICATION
     Dosage: 50 MILLIGRAM, BID
     Route: 065
  4. NUEDEXTA [Concomitant]
     Active Substance: DEXTROMETHORPHAN HYDROBROMIDE\QUINIDINE SULFATE
     Indication: PRODUCT USED FOR UNKNOWN INDICATION
     Dosage: 20-10 MILLIGRAM-1 CAP BID
     Route: 065
  5. EMLA [Concomitant]
     Active Substance: LIDOCAINE\PRILOCAINE
     Indication: PRODUCT USED FOR UNKNOWN INDICATION
     Dosage: 2.5% CREAM APPLY TOPICALLY PRIOR TO PORT ACCESS
     Route: 061

REACTIONS (1)
  - Fatigue [Not Recovered/Not Resolved]
